FAERS Safety Report 13860889 (Version 1)
Quarter: 2017Q3

REPORT INFORMATION
  Report Type: Report from Study
  Country: JP (occurrence: JP)
  Receive Date: 20170811
  Receipt Date: 20170811
  Transmission Date: 20171127
  Serious: Yes (Life-Threatening)
  Sender: FDA-Public Use
  Company Number: JP-JNJFOC-20170810138

PATIENT
  Age: 60 Year
  Sex: Male
  Weight: 56 kg

DRUGS (3)
  1. YONDELIS [Suspect]
     Active Substance: TRABECTEDIN
     Indication: SYNOVIAL SARCOMA METASTATIC
     Dosage: A 24-HOUR INFUSION
     Route: 042
     Dates: start: 20160927
  2. DEXAMETHASONE. [Concomitant]
     Active Substance: DEXAMETHASONE
     Route: 065
     Dates: start: 20160927
  3. YONDELIS [Suspect]
     Active Substance: TRABECTEDIN
     Indication: SYNOVIAL SARCOMA METASTATIC
     Route: 042
     Dates: start: 20161025

REACTIONS (9)
  - Platelet count decreased [Recovered/Resolved]
  - Vomiting [Recovered/Resolved]
  - Alanine aminotransferase increased [Recovered/Resolved]
  - Aspartate aminotransferase increased [Recovered/Resolved]
  - Neutrophil count decreased [Recovered/Resolved]
  - Anaemia [Recovering/Resolving]
  - White blood cell count decreased [Recovered/Resolved]
  - Nausea [Recovering/Resolving]
  - Decreased appetite [Recovering/Resolving]

NARRATIVE: CASE EVENT DATE: 20160929
